FAERS Safety Report 5441075-0 (Version None)
Quarter: 2007Q3

REPORT INFORMATION
  Report Type: 
  Country: None (occurrence: None)
  Receive Date: 20070831
  Receipt Date: 20070820
  Transmission Date: 20080115
  Serious: Yes (Other)
  Sender: FDA-Public Use
  Company Number: US-PFIZER INC-2007047453

PATIENT
  Sex: Female
  Weight: 62.6 kg

DRUGS (4)
  1. CHANTIX [Suspect]
     Indication: SMOKING CESSATION THERAPY
     Route: 048
     Dates: start: 20070214, end: 20070501
  2. CHANTIX [Suspect]
     Indication: TOBACCO ABUSE
  3. TOPROL-XL [Concomitant]
     Indication: BLOOD PRESSURE
  4. ALDACTAZIDE [Concomitant]

REACTIONS (3)
  - EPISTAXIS [None]
  - HYPERTENSION [None]
  - PLATELET COUNT DECREASED [None]
